FAERS Safety Report 23503558 (Version 1)
Quarter: 2024Q1

REPORT INFORMATION
  Report Type: Spontaneous
  Country: CN (occurrence: None)
  Receive Date: 20240209
  Receipt Date: 20240209
  Transmission Date: 20240410
  Serious: Yes (Other)
  Sender: FDA-Public Use
  Company Number: 2024A032718

PATIENT
  Age: 20107 Day
  Sex: Male
  Weight: 80 kg

DRUGS (2)
  1. CRESTOR [Suspect]
     Active Substance: ROSUVASTATIN CALCIUM
     Indication: Hyperlipidaemia
     Route: 048
     Dates: start: 20240123, end: 20240123
  2. NOVOLTEN [Concomitant]
     Indication: Toothache
     Route: 048
     Dates: start: 20240123, end: 20240123

REACTIONS (2)
  - Tachypnoea [Recovered/Resolved]
  - Rash [Recovered/Resolved]

NARRATIVE: CASE EVENT DATE: 20240123
